FAERS Safety Report 5003846-4 (Version None)
Quarter: 2006Q2

REPORT INFORMATION
  Report Type: 
  Country: None (occurrence: None)
  Receive Date: 20060515
  Receipt Date: 20060508
  Transmission Date: 20061013
  Serious: Yes (Hospitalization)
  Sender: FDA-Public Use
  Company Number: 2006061794

PATIENT

DRUGS (1)
  1. PHENYTOIN SODIUM [Suspect]
     Indication: EPILEPSY

REACTIONS (2)
  - ANTICONVULSANT DRUG LEVEL INCREASED [None]
  - BRAIN NEOPLASM MALIGNANT [None]
